FAERS Safety Report 11182767 (Version 1)
Quarter: 2015Q2

REPORT INFORMATION
  Report Type: Spontaneous
  Country: BR (occurrence: BR)
  Receive Date: 20150611
  Receipt Date: 20150611
  Transmission Date: 20150821
  Serious: Yes (Disabling)
  Sender: FDA-Public Use
  Company Number: BR-ELI_LILLY_AND_COMPANY-BR201506001143

PATIENT
  Sex: Female
  Weight: 80.4 kg

DRUGS (3)
  1. LANTUS [Concomitant]
     Active Substance: INSULIN GLARGINE
     Dosage: 25 IU, EACH EVENING
     Route: 058
  2. HUMALOG [Suspect]
     Active Substance: INSULIN LISPRO
     Indication: DIABETES MELLITUS
     Dosage: UNK UNK, OTHER
     Route: 058
     Dates: start: 1983
  3. LANTUS [Concomitant]
     Active Substance: INSULIN GLARGINE
     Indication: DIABETES MELLITUS
     Dosage: 25 IU, EACH MORNING
     Route: 058

REACTIONS (2)
  - Blindness [Not Recovered/Not Resolved]
  - Hyperglycaemia [Not Recovered/Not Resolved]

NARRATIVE: CASE EVENT DATE: 1996
